FAERS Safety Report 12715070 (Version 1)
Quarter: 2016Q3

REPORT INFORMATION
  Report Type: Report from Study
  Country: PE (occurrence: PE)
  Receive Date: 20160905
  Receipt Date: 20160905
  Transmission Date: 20161109
  Serious: Yes (Other)
  Sender: FDA-Public Use
  Company Number: PE-TEVA-689846ISR

PATIENT
  Age: 60 Year
  Sex: Female

DRUGS (1)
  1. PAREXIS 20 MG [Suspect]
     Active Substance: PAROXETINE HYDROCHLORIDE
     Dosage: 20 MILLIGRAM DAILY;
     Route: 048
     Dates: start: 200507

REACTIONS (2)
  - Varices oesophageal [Not Recovered/Not Resolved]
  - Hepatic cirrhosis [Not Recovered/Not Resolved]

NARRATIVE: CASE EVENT DATE: 201510
